FAERS Safety Report 6572205-5 (Version None)
Quarter: 2010Q1

REPORT INFORMATION
  Report Type: 
  Country: None (occurrence: None)
  Receive Date: 20100205
  Receipt Date: 20100126
  Transmission Date: 20100710
  Serious: Yes (Hospitalization, Other)
  Sender: FDA-Public Use
  Company Number: PHHY2009MX53649

PATIENT
  Age: 49 Year
  Sex: Male

DRUGS (2)
  1. DIOVAN HCT [Suspect]
     Indication: HYPERTENSION
     Dosage: 1 TABLET (160/12.5 MG)/ DAY
     Dates: start: 20070610, end: 20091001
  2. DIOVAN HCT [Suspect]
     Dosage: UNK
     Dates: start: 20091227

REACTIONS (4)
  - BRAIN NEOPLASM [None]
  - BRAIN TUMOUR OPERATION [None]
  - HYDROCEPHALUS [None]
  - VOMITING PROJECTILE [None]
